FAERS Safety Report 7085233-0 (Version None)
Quarter: 2010Q4

REPORT INFORMATION
  Report Type: 
  Country: None (occurrence: None)
  Receive Date: 20101105
  Receipt Date: 20101021
  Transmission Date: 20110411
  Serious: Yes (Death)
  Sender: FDA-Public Use
  Company Number: US-AMGEN-USASP2010000936

PATIENT

DRUGS (3)
  1. NPLATE [Suspect]
     Indication: IDIOPATHIC THROMBOCYTOPENIC PURPURA
     Dosage: 6 A?G/KG, UNK
     Dates: start: 20090224, end: 20100517
  2. CORTICOSTEROIDS [Concomitant]
     Dosage: UNK
     Dates: start: 20050405
  3. IMMU-G [Concomitant]
     Dosage: UNK
     Dates: start: 20050503

REACTIONS (1)
  - MYOCARDIAL INFARCTION [None]
